FAERS Safety Report 8876193 (Version 1)
Quarter: 2012Q4

REPORT INFORMATION
  Report Type: 
  Country: FI (occurrence: FI)
  Receive Date: 20121030
  Receipt Date: 20121030
  Transmission Date: 20130627
  Serious: Yes (Hospitalization)
  Sender: FDA-Public Use
  Company Number: FI-UCBSA-069739

PATIENT
  Age: 61 Year
  Sex: Female

DRUGS (6)
  1. CIMZIA [Suspect]
     Dosage: DOSE:200 MGX2
     Route: 058
     Dates: start: 20121002, end: 201210
  2. KALCIPOS-D [Concomitant]
     Route: 048
     Dates: start: 20120923
  3. APOLAR [Concomitant]
     Dosage: UNKNOWN DOSE
     Route: 061
     Dates: start: 20120327
  4. ELOCON [Concomitant]
     Dosage: UNKNOWN DOSE
     Route: 061
     Dates: start: 20110222
  5. FELDEN [Concomitant]
     Dosage: UNKNOWN DOSE
     Route: 061
     Dates: start: 20120706
  6. REUMACON [Concomitant]
     Dosage: UNKNOWN DOSE
     Route: 048
     Dates: end: 201209

REACTIONS (2)
  - Hypersensitivity [Recovered/Resolved]
  - Blood pressure increased [Unknown]
